FAERS Safety Report 24024131 (Version 2)
Quarter: 2024Q3

REPORT INFORMATION
  Report Type: Report from Study
  Country: JP (occurrence: JP)
  Receive Date: 20240627
  Receipt Date: 20240703
  Transmission Date: 20241016
  Serious: Yes (Disabling)
  Sender: PFIZER
  Company Number: JP-ASTELLAS-2022JP003813

PATIENT
  Age: 73 Year
  Sex: Female
  Weight: 58.4 kg

DRUGS (14)
  1. PADCEV [Suspect]
     Active Substance: ENFORTUMAB VEDOTIN-EJFV
     Indication: Transitional cell carcinoma
     Dosage: 1.25 MG/KG, UNKNOWN FREQ.
     Route: 041
     Dates: start: 20220215, end: 20220222
  2. PADCEV [Suspect]
     Active Substance: ENFORTUMAB VEDOTIN-EJFV
     Dosage: 1.0 MG/KG, UNKNOWN FREQ.
     Route: 041
     Dates: start: 20220316, end: 20220720
  3. PADCEV [Suspect]
     Active Substance: ENFORTUMAB VEDOTIN-EJFV
     Dosage: 1.0 MG/KG, UNKNOWN FREQ.
     Route: 041
     Dates: start: 20220831, end: 20221012
  4. GEMCITABINE HYDROCHLORIDE [Suspect]
     Active Substance: GEMCITABINE HYDROCHLORIDE
     Dosage: UNK UNK, UNKNOWN FREQ.
     Route: 065
  5. CISPLATIN [Suspect]
     Active Substance: CISPLATIN
     Dosage: UNK UNK, UNKNOWN FREQ
     Route: 065
  6. PACLITAXEL [Suspect]
     Active Substance: PACLITAXEL
     Dosage: UNK UNK, UNKNOWN FREQ
     Route: 065
  7. BEPOTASTINE BESYLATE [Concomitant]
     Active Substance: BEPOTASTINE BESYLATE
     Indication: Skin disorder
     Dosage: 10 MG, TWICE DAILY, 2 TABLETS FOR 2 TIMES A DAY AFTER BREAKFAST AND DINNER
     Route: 048
     Dates: start: 20220222, end: 20220304
  8. CYCLOSERINE [Concomitant]
     Active Substance: CYCLOSERINE
     Indication: Skin disorder
     Dosage: APPROPRIATE AMOUNT, TWICE DAILY
     Route: 065
     Dates: start: 20220222, end: 20220301
  9. PREDNISOLONE [Concomitant]
     Active Substance: PREDNISOLONE
     Indication: Skin disorder
     Dosage: 15 MG, ONCE DAILY, 3 TABLETS ONCE AFTER BREAKFAST
     Route: 048
     Dates: start: 20220302, end: 20220304
  10. PREDNISOLONE [Concomitant]
     Active Substance: PREDNISOLONE
     Dosage: UNK UNK, TWICE DAILY(10 MG IN THE MORNING, 5 MG IN THE AFTERNOON)
     Route: 048
     Dates: start: 20220305, end: 20220309
  11. PREDNISOLONE [Concomitant]
     Active Substance: PREDNISOLONE
     Dosage: 5 MG, BID
     Route: 048
     Dates: start: 20220310, end: 20220312
  12. PREDNISOLONE [Concomitant]
     Active Substance: PREDNISOLONE
     Dosage: 5 MG, QD
     Route: 048
     Dates: start: 20220313, end: 20220316
  13. MOMETASONE [Concomitant]
     Active Substance: MOMETASONE
     Indication: Skin disorder
     Dosage: APPROPRIATE AMOUNT, TWICE DAILY
     Route: 065
     Dates: start: 20220302, end: 20220329
  14. PEMBROLIZUMAB [Concomitant]
     Active Substance: PEMBROLIZUMAB
     Indication: Transitional cell carcinoma
     Dosage: UNK UNK, UNKNOWN FREQ.
     Dates: start: 20211214, end: 20220214

REACTIONS (2)
  - Skin disorder [Recovered/Resolved with Sequelae]
  - Hepatic function abnormal [Recovered/Resolved]

NARRATIVE: CASE EVENT DATE: 20220215
